FAERS Safety Report 6287836-X (Version None)
Quarter: 2009Q3

REPORT INFORMATION
  Report Type: 
  Country: None (occurrence: None)
  Receive Date: 20090729
  Receipt Date: 20090720
  Transmission Date: 20100115
  Serious: Yes (Hospitalization)
  Sender: FDA-Public Use
  Company Number: US-BIOGENIDEC-2009BI023091

PATIENT
  Age: 52 Year
  Sex: Female

DRUGS (1)
  1. AVONEX [Suspect]
     Indication: MULTIPLE SCLEROSIS
     Route: 030
     Dates: start: 20051124

REACTIONS (12)
  - BIPOLAR I DISORDER [None]
  - EAR INFECTION [None]
  - FAECAL INCONTINENCE [None]
  - HEADACHE [None]
  - INTERVERTEBRAL DISC PROTRUSION [None]
  - INTERVERTEBRAL DISCITIS [None]
  - LIVER FUNCTION TEST ABNORMAL [None]
  - NEUROGENIC BLADDER [None]
  - PYREXIA [None]
  - SPINAL CORD DISORDER [None]
  - URINARY INCONTINENCE [None]
  - VTH NERVE INJURY [None]
